FAERS Safety Report 4930802-4 (Version None)
Quarter: 2006Q1

REPORT INFORMATION
  Report Type: 
  Country: None (occurrence: None)
  Receive Date: 20060227
  Receipt Date: 20060215
  Transmission Date: 20060701
  Serious: Yes (Life-Threatening, Hospitalization, Other)
  Sender: FDA-Public Use
  Company Number: 2005153548

PATIENT
  Age: 46 Year
  Sex: Male

DRUGS (4)
  1. BEXTRA [Suspect]
     Indication: HEADACHE
     Dosage: 20-40 MG (20 MG, 1 D) , ORAL
     Route: 048
     Dates: start: 20050110, end: 20050101
  2. ALL OTHER THERAPEUTIC PRODUCTS (ALL OTHER THERAPEUTIC PRODUCTS) [Concomitant]
  3. ATACAND [Concomitant]
  4. ACETAZOLAMIDE [Concomitant]

REACTIONS (3)
  - CEREBRAL INFARCTION [None]
  - DEPRESSION [None]
  - LOSS OF CONSCIOUSNESS [None]
